FAERS Safety Report 7819975-3 (Version None)
Quarter: 2011Q4

REPORT INFORMATION
  Report Type: 
  Country: None (occurrence: None)
  Receive Date: 20111018
  Receipt Date: 20111004
  Transmission Date: 20120403
  Serious: Yes (Hospitalization)
  Sender: FDA-Public Use
  Company Number: TR-MYLANLABS-2011S1021108

PATIENT
  Age: 11 Year
  Sex: Female

DRUGS (2)
  1. METHOTREXATE [Suspect]
     Indication: ACUTE LYMPHOCYTIC LEUKAEMIA
     Dosage: 12MG EVERY 1-2 WEEKS; RECEIVED 4 DOSES
     Route: 037
  2. VINCRISTINE [Concomitant]
     Indication: ACUTE LYMPHOCYTIC LEUKAEMIA
     Dosage: 1.5 MG/M2
     Route: 042

REACTIONS (1)
  - NEUROTOXICITY [None]
